FAERS Safety Report 25428307 (Version 3)
Quarter: 2025Q3

REPORT INFORMATION
  Report Type: Report from Study
  Country: TH (occurrence: TH)
  Receive Date: 20250612
  Receipt Date: 20250728
  Transmission Date: 20251020
  Serious: Yes (Hospitalization, Other)
  Sender: ROCHE
  Company Number: TH-ROCHE-10000296945

PATIENT
  Age: 77 Year
  Sex: Male

DRUGS (1)
  1. POLIVY [Suspect]
     Active Substance: POLATUZUMAB VEDOTIN-PIIQ
     Indication: Diffuse large B-cell lymphoma
     Route: 065

REACTIONS (6)
  - Gastrointestinal haemorrhage [Unknown]
  - Diarrhoea [Unknown]
  - Hypotension [Unknown]
  - Shock [Unknown]
  - Haemorrhage urinary tract [Unknown]
  - Thrombosis [Unknown]
